FAERS Safety Report 13550938 (Version 1)
Quarter: 2017Q2

REPORT INFORMATION
  Report Type: Report from Study
  Country: US (occurrence: US)
  Receive Date: 20170516
  Receipt Date: 20170516
  Transmission Date: 20170830
  Serious: Yes (Hospitalization)
  Sender: FDA-Public Use
  Company Number: US-PFIZER INC-2015414283

PATIENT
  Age: 27 Year
  Sex: Male
  Weight: 63 kg

DRUGS (5)
  1. AVELUMAB [Suspect]
     Active Substance: AVELUMAB
     Indication: ADRENOCORTICAL CARCINOMA
     Dosage: 670 MG, EVERY 2 WEEKS
     Route: 042
     Dates: start: 20151016, end: 20151117
  2. OXYCODONE [Suspect]
     Active Substance: OXYCODONE
     Indication: TUMOUR PAIN
     Dosage: 10 MG, UNK
     Route: 048
     Dates: start: 20150224
  3. FENTANYL CITRATE. [Suspect]
     Active Substance: FENTANYL CITRATE
     Indication: ABDOMINAL PAIN UPPER
     Dosage: UNIT DOSE IS 25 MICROGRAMS/HOUR, ONCE EVERY 3 DAYS
     Route: 062
     Dates: start: 20151116
  4. ZOFRAN [Concomitant]
     Active Substance: ONDANSETRON HYDROCHLORIDE
     Indication: NAUSEA
     Dosage: 8 MG, UNK
     Route: 048
     Dates: start: 20151023
  5. HYDROMORPHONE HYDROCHLORIDE. [Suspect]
     Active Substance: HYDROMORPHONE HYDROCHLORIDE
     Indication: TUMOUR PAIN
     Dosage: 4 MG, UNK
     Route: 048
     Dates: start: 20151103

REACTIONS (2)
  - Vomiting [Recovered/Resolved]
  - Constipation [Recovered/Resolved]

NARRATIVE: CASE EVENT DATE: 20151118
